FAERS Safety Report 19544042 (Version 2)
Quarter: 2021Q3

REPORT INFORMATION
  Report Type: Report from Study
  Country: US (occurrence: US)
  Receive Date: 20210714
  Receipt Date: 20210817
  Transmission Date: 20211014
  Serious: Yes (Hospitalization)
  Sender: FDA-Public Use
  Company Number: US-JNJFOC-20210720949

PATIENT
  Age: 68 Year
  Sex: Female
  Weight: 70.5 kg

DRUGS (5)
  1. BOSENTAN. [Concomitant]
     Active Substance: BOSENTAN
  2. OFEV [Concomitant]
     Active Substance: NINTEDANIB
  3. SELEXIPAG [Suspect]
     Active Substance: SELEXIPAG
     Indication: PULMONARY ARTERIAL HYPERTENSION
     Route: 048
  4. SILDENAFIL CITRATE. [Concomitant]
     Active Substance: SILDENAFIL CITRATE
  5. SELEXIPAG [Suspect]
     Active Substance: SELEXIPAG
     Route: 048

REACTIONS (5)
  - Dizziness [Unknown]
  - Blood magnesium decreased [Unknown]
  - Dyspnoea [Unknown]
  - Fall [Unknown]
  - Feeling abnormal [Unknown]

NARRATIVE: CASE EVENT DATE: 20210626
